FAERS Safety Report 13454137 (Version 1)
Quarter: 2017Q2

REPORT INFORMATION
  Report Type: Spontaneous
  Country: US (occurrence: US)
  Receive Date: 20170418
  Receipt Date: 20170418
  Transmission Date: 20170830
  Serious: No
  Sender: FDA-Public Use
  Company Number: US-ALLERGAN-1671986US

PATIENT
  Sex: Female

DRUGS (2)
  1. LATISSE [Suspect]
     Active Substance: BIMATOPROST
     Indication: PRODUCT USED FOR UNKNOWN INDICATION
     Dosage: 2 GTT, QOD
     Route: 061
     Dates: start: 2011
  2. LATISSE [Suspect]
     Active Substance: BIMATOPROST
     Dosage: 2 GTT, UNK
     Route: 061

REACTIONS (3)
  - Eye irritation [Recovered/Resolved]
  - Product odour abnormal [Unknown]
  - Inappropriate schedule of drug administration [Unknown]
